FAERS Safety Report 6879567-X (Version None)
Quarter: 2010Q3

REPORT INFORMATION
  Report Type: 
  Country: None (occurrence: None)
  Receive Date: 20100728
  Receipt Date: 20100716
  Transmission Date: 20110219
  Serious: Yes (Death)
  Sender: FDA-Public Use
  Company Number: US-SANOFI-AVENTIS-2010SA041886

PATIENT
  Sex: Male

DRUGS (6)
  1. CLOPIDOGREL BISULFATE [Suspect]
     Route: 048
     Dates: start: 20100519, end: 20100519
  2. CLOPIDOGREL BISULFATE [Suspect]
     Route: 048
     Dates: start: 20100520
  3. ASPIRIN [Suspect]
     Indication: ANGINA PECTORIS
     Route: 048
     Dates: start: 20100512
  4. MULTI-VITAMINS [Concomitant]
  5. SIMVASTATIN [Concomitant]
  6. FISH OIL [Concomitant]

REACTIONS (3)
  - MYOCARDIAL INFARCTION [None]
  - OVERDOSE [None]
  - THROMBOSIS IN DEVICE [None]
